FAERS Safety Report 11693898 (Version 1)
Quarter: 2015Q4

REPORT INFORMATION
  Report Type: Spontaneous
  Country: CH (occurrence: CH)
  Receive Date: 20151103
  Receipt Date: 20151103
  Transmission Date: 20160304
  Serious: Yes (Death, Other)
  Sender: FDA-Public Use
  Company Number: PHHY2015CH142138

PATIENT
  Age: 48 Year
  Sex: Male
  Weight: 72 kg

DRUGS (3)
  1. EVEROLIMUS [Suspect]
     Active Substance: EVEROLIMUS
     Indication: METASTATIC RENAL CELL CARCINOMA
     Route: 065
     Dates: start: 20130513
  2. INLYTA [Suspect]
     Active Substance: AXITINIB
     Indication: METASTATIC RENAL CELL CARCINOMA
     Dosage: 5 MG, BID
     Route: 048
     Dates: start: 20110829, end: 20111115
  3. INLYTA [Suspect]
     Active Substance: AXITINIB
     Dosage: UNK
     Route: 048
     Dates: start: 20111125, end: 20130601

REACTIONS (9)
  - Metastases to liver [Unknown]
  - Hypertension [Recovered/Resolved]
  - Chest pain [Unknown]
  - Discomfort [Unknown]
  - Diarrhoea [Recovered/Resolved]
  - Metastases to central nervous system [Unknown]
  - Dizziness [Unknown]
  - Dysphonia [Recovered/Resolved]
  - Death [Fatal]

NARRATIVE: CASE EVENT DATE: 20110905
